FAERS Safety Report 9989853 (Version 1)
Quarter: 2014Q1

REPORT INFORMATION
  Report Type: Report from Study
  Country: US (occurrence: US)
  Receive Date: 20140310
  Receipt Date: 20140310
  Transmission Date: 20141002
  Serious: No
  Sender: FDA-Public Use
  Company Number: US-ABBVIE-13P-163-1129033-00

PATIENT
  Sex: Female
  Weight: 85.35 kg

DRUGS (2)
  1. HUMIRA [Suspect]
     Indication: PSORIATIC ARTHROPATHY
     Route: 058
     Dates: start: 2009
  2. HUMIRA [Suspect]
     Indication: PSORIASIS

REACTIONS (1)
  - Arthralgia [Not Recovered/Not Resolved]
